FAERS Safety Report 23276660 (Version 1)
Quarter: 2023Q4

REPORT INFORMATION
  Report Type: Spontaneous
  Country: US (occurrence: US)
  Receive Date: 20231208
  Receipt Date: 20231208
  Transmission Date: 20240110
  Serious: No
  Sender: FDA-Public Use
  Company Number: US-AMERICAN REGENT INC-2023000215

PATIENT
  Age: 73 Year
  Sex: Female

DRUGS (4)
  1. VENOFER [Suspect]
     Active Substance: IRON SUCROSE
     Indication: Gastrointestinal haemorrhage
     Dosage: 100 MILLIGRAM, SINGLE
     Route: 065
     Dates: start: 20221222, end: 20221222
  2. VENOFER [Suspect]
     Active Substance: IRON SUCROSE
     Indication: Iron deficiency anaemia
     Dosage: 100 MILLIGRAM, SINGLE
     Route: 065
     Dates: start: 20221228, end: 20221228
  3. VENOFER [Suspect]
     Active Substance: IRON SUCROSE
     Dosage: 100 MILLIGRAM, SINGLE
     Route: 065
     Dates: start: 20230104, end: 20230104
  4. VENOFER [Suspect]
     Active Substance: IRON SUCROSE
     Dosage: 100 MILLIGRAM, SINGLE
     Route: 065
     Dates: start: 20230111, end: 20230111

REACTIONS (3)
  - Therapy non-responder [Unknown]
  - Product use in unapproved indication [Unknown]
  - Off label use [Unknown]

NARRATIVE: CASE EVENT DATE: 20221222
